FAERS Safety Report 4318607-9 (Version None)
Quarter: 2004Q1

REPORT INFORMATION
  Report Type: 
  Country: None (occurrence: None)
  Receive Date: 20040316
  Receipt Date: 20040316
  Transmission Date: 20041129
  Serious: Yes (Other)
  Sender: FDA-Public Use
  Company Number: None

PATIENT
  Sex: Male

DRUGS (4)
  1. STRATTERA [Suspect]
     Indication: ATTENTION DEFICIT/HYPERACTIVITY DISORDER
     Dosage: 18 MG QD PO
     Route: 048
  2. CLARITIN [Suspect]
     Indication: ASTHMA
     Dosage: 2 TSP QD PO
     Route: 048
  3. CLARITIN [Suspect]
     Indication: HYPERSENSITIVITY
     Dosage: 2 TSP QD PO
     Route: 048
  4. MIRALAX [Concomitant]

REACTIONS (1)
  - MYDRIASIS [None]
